FAERS Safety Report 19795068 (Version 1)
Quarter: 2021Q3

REPORT INFORMATION
  Report Type: Spontaneous
  Country: FR (occurrence: FR)
  Receive Date: 20210907
  Receipt Date: 20210907
  Transmission Date: 20211014
  Serious: Yes (Hospitalization)
  Sender: FDA-Public Use
  Company Number: FR-TEVA-2021-FR-1948516

PATIENT
  Age: 92 Year
  Sex: Female
  Weight: 67 kg

DRUGS (2)
  1. ALLOPURINOL. [Suspect]
     Active Substance: ALLOPURINOL
     Indication: ERYSIPELAS
     Route: 065
     Dates: start: 20210724
  2. AMOXICILLINE [Suspect]
     Active Substance: AMOXICILLIN
     Route: 065

REACTIONS (1)
  - Rash erythematous [Not Recovered/Not Resolved]

NARRATIVE: CASE EVENT DATE: 20210726
